FAERS Safety Report 17124875 (Version 2)
Quarter: 2020Q1

REPORT INFORMATION
  Report Type: Spontaneous
  Country: FR (occurrence: FR)
  Receive Date: 20191206
  Receipt Date: 20200110
  Transmission Date: 20200409
  Serious: Yes (Death, Other)
  Sender: FDA-Public Use
  Company Number: FR-009507513-1912FRA002280

PATIENT
  Age: 79 Year
  Sex: Male

DRUGS (3)
  1. INTERFERON ALFA-2B [Suspect]
     Active Substance: INTERFERON ALFA-2B
     Indication: HEPATITIS C
     Dosage: DOSAGE FORM: POWDER FOR SOLUTION FOR INJECTION EXTENDED RELEASE (XL) 100 MICROGRAM EVERY 1 WEEK
     Dates: start: 20110803, end: 20120117
  2. SIMEPREVIR [Suspect]
     Active Substance: SIMEPREVIR
     Indication: HEPATITIS C
     Dosage: 150 MILLIGRAM, EVERY ONE DAY
     Dates: start: 20110803, end: 20111025
  3. REBETOL [Suspect]
     Active Substance: RIBAVIRIN
     Indication: HEPATITIS C
     Dosage: 500 MILLIGRAM, EVERY TWO DAYS
     Dates: start: 20110803, end: 20120117

REACTIONS (1)
  - Death [Fatal]

NARRATIVE: CASE EVENT DATE: 20170702
